FAERS Safety Report 6506046-1 (Version None)
Quarter: 2009Q4

REPORT INFORMATION
  Report Type: 
  Country: None (occurrence: None)
  Receive Date: 20091217
  Receipt Date: 20091217
  Transmission Date: 20100525
  Serious: Yes (Life-Threatening, Other)
  Sender: FDA-Public Use
  Company Number: None

PATIENT
  Age: 16 Year
  Sex: Female
  Weight: 45.3597 kg

DRUGS (2)
  1. ACCUTANE [Suspect]
     Indication: ACNE
     Dosage: ONE PILL TWICE DAILY
     Dates: start: 19950101, end: 19970101
  2. ACCUTANE [Suspect]
     Dosage: ONE PILL TWICE DAILY

REACTIONS (7)
  - ACNE [None]
  - CONDITION AGGRAVATED [None]
  - DEPRESSION [None]
  - DRY SKIN [None]
  - EMOTIONAL DISORDER [None]
  - MOOD ALTERED [None]
  - SUICIDAL BEHAVIOUR [None]
